FAERS Safety Report 8823740 (Version 2)
Quarter: 2012Q4

REPORT INFORMATION
  Report Type: 
  Country: US (occurrence: US)
  Receive Date: 20121003
  Receipt Date: 20121011
  Transmission Date: 20130627
  Serious: Yes (Death, Other)
  Sender: FDA-Public Use
  Company Number: CHPA2012US020648

PATIENT
  Age: 83 Year
  Sex: Female

DRUGS (2)
  1. MYOFLEX ANALGESIC CREME [Suspect]
     Indication: MUSCLE SPASMS
     Dosage: Unk, Unk
     Route: 061
  2. DRUG THERAPY NOS [Concomitant]
     Indication: THYROID DISORDER
     Dosage: Unk, Unk

REACTIONS (3)
  - Dementia Alzheimer^s type [Fatal]
  - Abasia [Unknown]
  - Off label use [Unknown]
